FAERS Safety Report 5098607-4 (Version None)
Quarter: 2006Q3

REPORT INFORMATION
  Report Type: 
  Country: None (occurrence: None)
  Receive Date: 20060907
  Receipt Date: 20060828
  Transmission Date: 20061208
  Serious: Yes (Other)
  Sender: FDA-Public Use
  Company Number: US-JNJFOC-20060806548

PATIENT
  Sex: Female
  Weight: 56.7 kg

DRUGS (3)
  1. DURAGESIC-100 [Suspect]
     Indication: PAIN
     Route: 062
  2. PAXIL [Concomitant]
     Indication: DEPRESSION
     Route: 048
  3. ASPIRIN [Concomitant]
     Route: 048

REACTIONS (11)
  - APPLICATION SITE BLEEDING [None]
  - APPLICATION SITE ERYTHEMA [None]
  - APPLICATION SITE REACTION [None]
  - ARTHRITIS [None]
  - BLOOD CHOLESTEROL INCREASED [None]
  - BLOOD DISORDER [None]
  - CAROTID ARTERY OCCLUSION [None]
  - DIZZINESS [None]
  - GAIT DISTURBANCE [None]
  - PERIPHERAL COLDNESS [None]
  - POOR PERIPHERAL CIRCULATION [None]
